FAERS Safety Report 8070648-4 (Version None)
Quarter: 2011Q4

REPORT INFORMATION
  Report Type: 
  Country: None (occurrence: None)
  Receive Date: 20111221
  Receipt Date: 20110922
  Transmission Date: 20120403
  Serious: Yes (Hospitalization)
  Sender: FDA-Public Use
  Company Number: PHEH2011US04968

PATIENT
  Age: 5 Year
  Sex: Female
  Weight: 19.5 kg

DRUGS (2)
  1. PENICILLIN V POTASSIUM (PHENOXYMETHYPENICILLIN POTASSIUM) [Concomitant]
  2. EXJADE [Suspect]
     Indication: SICKLE CELL ANAEMIA
     Dosage: 500 MG, DAILY, ORAL
     Route: 048
     Dates: start: 20110428

REACTIONS (1)
  - RENAL FAILURE ACUTE [None]
